FAERS Safety Report 9406218 (Version 1)
Quarter: 2013Q3

REPORT INFORMATION
  Report Type: Spontaneous
  Country: US (occurrence: US)
  Receive Date: 20130717
  Receipt Date: 20130717
  Transmission Date: 20140515
  Serious: No
  Sender: FDA-Public Use
  Company Number: IN-009507513-1307USA007546

PATIENT
  Age: 46 Year
  Sex: Female

DRUGS (1)
  1. SAPHRIS [Suspect]
     Dosage: 5  1X D
     Route: 048

REACTIONS (2)
  - Restless legs syndrome [Unknown]
  - Anxiety [Unknown]
